FAERS Safety Report 7704700 (Version 2)
Quarter: 2013Q3

REPORT INFORMATION
  Report Type: Spontaneous
  Country: NO (occurrence: NO)
  Receive Date: 20101213
  Receipt Date: 20130909
  Transmission Date: 20140515
  Serious: Yes (Death, Hospitalization)
  Sender: FDA-Public Use
  Company Number: NO-B.I. PHARMACEUTICALS,INC./RIDGEFIELD-2010-SW-00398NO

PATIENT
  Age: 54 Year
  Sex: Male

DRUGS (5)
  1. ASASANTIN RETARD [Suspect]
     Indication: CEREBRAL INFARCTION
     Dosage: 200/25 MG
     Route: 048
     Dates: start: 200901, end: 201010
  2. ASASANTIN RETARD [Suspect]
     Indication: CEREBROVASCULAR ACCIDENT PROPHYLAXIS
  3. LANSOPRAZOLE [Concomitant]
     Indication: OESOPHAGITIS
     Dosage: 30 MG
     Route: 048
     Dates: start: 2007
  4. SIMVASTATIN [Concomitant]
     Indication: CEREBRAL INFARCTION
     Dosage: 40 MG
     Route: 048
     Dates: start: 200901
  5. SIMVASTATIN [Concomitant]
     Indication: CEREBROVASCULAR ACCIDENT PROPHYLAXIS

REACTIONS (2)
  - Death [Fatal]
  - Haemorrhage intracranial [Fatal]
